FAERS Safety Report 4630877-6 (Version None)
Quarter: 2005Q2

REPORT INFORMATION
  Report Type: 
  Country: None (occurrence: None)
  Receive Date: 20050404
  Receipt Date: 20050404
  Transmission Date: 20051028
  Serious: Yes (Life-Threatening)
  Sender: FDA-Public Use
  Company Number: None

PATIENT
  Age: 18 Year
  Sex: Female
  Weight: 49.8957 kg

DRUGS (3)
  1. VINCRISTINE [Suspect]
     Dosage: 2 MG IV
     Route: 042
     Dates: start: 20050127
  2. DOXORUBICIN HCL [Suspect]
     Dosage: 36 MG IV
     Route: 042
     Dates: start: 20050127
  3. DEXAMETHASONE [Suspect]
     Dosage: 14.75 PO
     Route: 048
     Dates: start: 20050127

REACTIONS (5)
  - BACTERIA BLOOD IDENTIFIED [None]
  - EMOTIONAL DISTRESS [None]
  - ENTEROCOLITIS [None]
  - NEUTROPENIA [None]
  - SHOCK [None]
